FAERS Safety Report 8604638-7 (Version None)
Quarter: 2012Q3

REPORT INFORMATION
  Report Type: 
  Country: None (occurrence: None)
  Receive Date: 20120820
  Receipt Date: 20120810
  Transmission Date: 20120928
  Serious: Yes (Other)
  Sender: FDA-Public Use
  Company Number: PHEH2012US012112

PATIENT
  Sex: Female

DRUGS (1)
  1. EXELON [Suspect]
     Dosage: 9.5 MG, UNK
     Route: 062

REACTIONS (6)
  - HYPOPHAGIA [None]
  - IMPAIRED REASONING [None]
  - VIRAL INFECTION [None]
  - DRUG INEFFECTIVE [None]
  - ASTHENIA [None]
  - MEMORY IMPAIRMENT [None]
